FAERS Safety Report 9400285 (Version 2)
Quarter: 2013Q4

REPORT INFORMATION
  Report Type: Spontaneous
  Country: GB (occurrence: GB)
  Receive Date: 20130715
  Receipt Date: 20131113
  Transmission Date: 20140711
  Serious: Yes (Disabling)
  Sender: FDA-Public Use
  Company Number: GB-MYLANLABS-2013S1014551

PATIENT
  Age: 69 Year
  Sex: Male
  Weight: 80 kg

DRUGS (3)
  1. OMEPRAZOLE [Suspect]
     Indication: PRODUCT USED FOR UNKNOWN INDICATION
     Dates: start: 20130514
  2. VORICONAZOLE [Suspect]
     Indication: INTERVERTEBRAL DISCITIS
     Route: 042
     Dates: start: 20130510
  3. VORICONAZOLE [Suspect]
     Indication: INTERVERTEBRAL DISCITIS
     Dosage: 12 TH HOURLY

REACTIONS (2)
  - Drug interaction [Unknown]
  - Drug level increased [Recovered/Resolved]
